FAERS Safety Report 10851619 (Version 1)
Quarter: 2015Q1

REPORT INFORMATION
  Report Type: Spontaneous
  Country: US (occurrence: US)
  Receive Date: 20150222
  Receipt Date: 20150222
  Transmission Date: 20150721
  Serious: No
  Sender: FDA-Public Use
  Company Number: US-ALLERGAN-1414846US

PATIENT
  Age: 79 Year
  Sex: Female

DRUGS (6)
  1. DIGOXIN. [Concomitant]
     Active Substance: DIGOXIN
     Indication: HEART RATE IRREGULAR
     Dosage: 0.125 MG, QD
     Route: 048
  2. LEVOTHYROXINE [Concomitant]
     Active Substance: LEVOTHYROXINE
     Indication: HYPOTHYROIDISM
     Dosage: 0.75 MG, QD
     Route: 048
  3. BOTOX COSMETIC [Suspect]
     Active Substance: ONABOTULINUMTOXINA
     Indication: SKIN WRINKLING
     Dosage: UNK UNK, SINGLE
     Route: 030
     Dates: start: 2012, end: 2012
  4. BOTOX COSMETIC [Suspect]
     Active Substance: ONABOTULINUMTOXINA
     Dosage: UNK UNK, SINGLE
     Route: 030
     Dates: start: 2012, end: 2012
  5. ASACOL [Concomitant]
     Active Substance: MESALAMINE
     Indication: CHOLECYSTITIS
     Dosage: 400 MG, BID
     Route: 048
  6. VITAMINS [Concomitant]
     Active Substance: VITAMINS
     Indication: PRODUCT USED FOR UNKNOWN INDICATION
     Dosage: UNK

REACTIONS (18)
  - Chest pain [Recovered/Resolved]
  - Drug ineffective [Unknown]
  - Dizziness [Unknown]
  - Fatigue [Unknown]
  - Heart rate increased [Unknown]
  - Pain [Recovered/Resolved]
  - Skin wrinkling [Unknown]
  - Pollakiuria [Unknown]
  - Influenza like illness [Recovered/Resolved]
  - Blood pressure increased [Unknown]
  - Bladder hypertrophy [Unknown]
  - Urinary tract disorder [Recovered/Resolved]
  - Thirst [Unknown]
  - Dysuria [Unknown]
  - Nausea [Unknown]
  - Bladder prolapse [Unknown]
  - Eye pain [Unknown]
  - Headache [Unknown]
